FAERS Safety Report 8360683-0 (Version None)
Quarter: 2012Q2

REPORT INFORMATION
  Report Type: 
  Country: None (occurrence: None)
  Receive Date: 20120515
  Receipt Date: 20120507
  Transmission Date: 20120825
  Serious: Yes (Hospitalization, Other)
  Sender: FDA-Public Use
  Company Number: US-ACTELION-A-NJ2012-61622

PATIENT

DRUGS (2)
  1. COUMADIN [Concomitant]
  2. TRACLEER [Suspect]
     Indication: PULMONARY ARTERIAL HYPERTENSION
     Dosage: UNK
     Route: 048
     Dates: start: 20090825

REACTIONS (6)
  - JOINT DISLOCATION REDUCTION [None]
  - HIP ARTHROPLASTY [None]
  - CONSTIPATION [None]
  - INFLUENZA [None]
  - ABDOMINAL DISCOMFORT [None]
  - BRONCHITIS [None]
